FAERS Safety Report 21914014 (Version 1)
Quarter: 2023Q1

REPORT INFORMATION
  Report Type: Spontaneous
  Country: US (occurrence: US)
  Receive Date: 20230126
  Receipt Date: 20230126
  Transmission Date: 20230418
  Serious: No
  Sender: FDA-Public Use
  Company Number: US-ALLERGAN-2224775US

PATIENT

DRUGS (2)
  1. BOTOX [Suspect]
     Active Substance: ONABOTULINUMTOXINA
     Indication: Exposure during pregnancy
     Dosage: 170 UNITS, SINGLE
     Route: 063
     Dates: start: 20220321, end: 20220321
  2. LAMOTRIGINE [Suspect]
     Active Substance: LAMOTRIGINE
     Indication: Exposure during pregnancy
     Dosage: UNK
     Route: 063

REACTIONS (1)
  - Maternal exposure during breast feeding [Unknown]
